FAERS Safety Report 8128526-8 (Version None)
Quarter: 2012Q1

REPORT INFORMATION
  Report Type: 
  Country: None (occurrence: None)
  Receive Date: 20120210
  Receipt Date: 20111213
  Transmission Date: 20120608
  Serious: No
  Sender: FDA-Public Use
  Company Number: US-BRISTOL-MYERS SQUIBB COMPANY-16262040

PATIENT
  Age: 87 Year
  Sex: Female

DRUGS (1)
  1. ORENCIA [Suspect]
     Indication: RHEUMATOID ARTHRITIS
     Dosage: OVER A YEAR AGO; LAST INFUSION ON 17NOV2011,08DEC11. DOSE INCREASED TO 135MG
     Route: 042

REACTIONS (4)
  - NASOPHARYNGITIS [None]
  - HYPERTENSION [None]
  - CHEST DISCOMFORT [None]
  - DYSPHONIA [None]
